FAERS Safety Report 19857742 (Version 2)
Quarter: 2021Q3

REPORT INFORMATION
  Report Type: Spontaneous
  Country: US (occurrence: US)
  Receive Date: 20210921
  Receipt Date: 20210929
  Transmission Date: 20211014
  Serious: Yes (Other)
  Sender: FDA-Public Use
  Company Number: US-SUN PHARMACEUTICAL INDUSTRIES LTD-2021R1-311619

PATIENT
  Age: 6 Year
  Sex: Male
  Weight: 27 kg

DRUGS (1)
  1. CETIRIZINE [Suspect]
     Active Substance: CETIRIZINE HYDROCHLORIDE
     Indication: RHINITIS ALLERGIC
     Dosage: 15?20 MG
     Route: 065

REACTIONS (11)
  - Pyrexia [Recovering/Resolving]
  - Tachypnoea [Recovering/Resolving]
  - Mydriasis [Recovering/Resolving]
  - Accidental overdose [Unknown]
  - Mucosal dryness [Recovering/Resolving]
  - Toxicity to various agents [Recovering/Resolving]
  - Flushing [Recovering/Resolving]
  - Agitation [Recovering/Resolving]
  - Tachycardia [Recovering/Resolving]
  - Urinary incontinence [Recovering/Resolving]
  - Hallucination, visual [Recovering/Resolving]
